FAERS Safety Report 4290715-0 (Version None)
Quarter: 2004Q1

REPORT INFORMATION
  Report Type: 
  Country: None (occurrence: None)
  Receive Date: 20040209
  Receipt Date: 20040128
  Transmission Date: 20041129
  Serious: Yes (Other)
  Sender: FDA-Public Use
  Company Number: 2004006044

PATIENT
  Age: 80 Year
  Sex: Male
  Weight: 65 kg

DRUGS (5)
  1. DOXAZOSIN MESYLATE [Suspect]
     Indication: HYPERTENSION
     Dosage: 4 MG DAILY, ORAL
     Route: 048
     Dates: start: 20030601, end: 20031029
  2. ACETYLSALICYLIC ACID SRT [Concomitant]
  3. BENDROFLUMETHIAZIDE (BENDROFLUMETHIAZIDE) [Concomitant]
  4. NICORANDIL (NICORANDIL) [Concomitant]
  5. SERETIDE MITE (FLUTICASONE PROPIONATE, SALMETEROL XINAFOATE) [Concomitant]

REACTIONS (5)
  - ALANINE AMINOTRANSFERASE INCREASED [None]
  - BIOPSY LIVER ABNORMAL [None]
  - BLOOD ALKALINE PHOSPHATASE INCREASED [None]
  - LIVER FUNCTION TEST ABNORMAL [None]
  - PROTEIN TOTAL INCREASED [None]
